FAERS Safety Report 23908375 (Version 1)
Quarter: 2024Q2

REPORT INFORMATION
  Report Type: Report from Study
  Country: US (occurrence: US)
  Receive Date: 20240528
  Receipt Date: 20240528
  Transmission Date: 20240716
  Serious: Yes (Hospitalization)
  Sender: FDA-Public Use
  Company Number: US-Eisai Medical Research-EC-2016-014929

PATIENT
  Age: 46 Year
  Sex: Female

DRUGS (26)
  1. LENVIMA [Suspect]
     Active Substance: LENVATINIB
     Indication: Thyroid cancer
     Route: 048
     Dates: start: 20160224, end: 20160307
  2. LENVIMA [Suspect]
     Active Substance: LENVATINIB
     Route: 048
     Dates: start: 201603, end: 2016
  3. LENVIMA [Suspect]
     Active Substance: LENVATINIB
     Route: 048
     Dates: end: 201708
  4. LENVIMA [Suspect]
     Active Substance: LENVATINIB
     Route: 048
     Dates: start: 201708, end: 201806
  5. LENVIMA [Suspect]
     Active Substance: LENVATINIB
     Route: 048
     Dates: start: 201806, end: 2019
  6. LENVIMA [Suspect]
     Active Substance: LENVATINIB
     Route: 048
     Dates: start: 2019
  7. LENVIMA [Suspect]
     Active Substance: LENVATINIB
     Route: 048
     Dates: start: 202401
  8. LENVIMA [Suspect]
     Active Substance: LENVATINIB
     Route: 048
     Dates: start: 202403
  9. LENVIMA [Suspect]
     Active Substance: LENVATINIB
     Route: 048
     Dates: start: 20240403
  10. METHYLPREDNISOLONE [Concomitant]
     Active Substance: METHYLPREDNISOLONE
  11. AMLODIPINE BESYLATE [Concomitant]
     Active Substance: AMLODIPINE BESYLATE
  12. SYNTHROID [Concomitant]
     Active Substance: LEVOTHYROXINE SODIUM
  13. AZITHROMYCIN [Concomitant]
     Active Substance: AZITHROMYCIN
  14. BUPROPION [Concomitant]
     Active Substance: BUPROPION
  15. BYSTOLIC [Concomitant]
     Active Substance: NEBIVOLOL HYDROCHLORIDE
  16. CARAFATE [Concomitant]
     Active Substance: SUCRALFATE
  17. GABAPENTIN [Concomitant]
     Active Substance: GABAPENTIN
  18. HYDRALAZINE [Concomitant]
     Active Substance: HYDRALAZINE HYDROCHLORIDE
  19. LAMOTRIGINE [Concomitant]
     Active Substance: LAMOTRIGINE
  20. LIOTHYRONINE [Concomitant]
     Active Substance: LIOTHYRONINE
  21. METOPROLOL [Concomitant]
     Active Substance: METOPROLOL
  22. PANTOPRAZOLE [Concomitant]
     Active Substance: PANTOPRAZOLE
  23. POTASSIUM [Concomitant]
     Active Substance: POTASSIUM
  24. VALSARTAN AND HYDROCHLOROTHIAZIDE [Concomitant]
     Active Substance: HYDROCHLOROTHIAZIDE\VALSARTAN
  25. TOPROL XL [Concomitant]
     Active Substance: METOPROLOL SUCCINATE
  26. LO-LOESTRIN-FE [Concomitant]

REACTIONS (34)
  - Oesophageal fistula [Recovering/Resolving]
  - Spinal disorder [Unknown]
  - Pneumonia [Unknown]
  - Sepsis [Unknown]
  - Fall [Unknown]
  - Cerebral haemorrhage [Unknown]
  - Cerebrovascular accident [Unknown]
  - Urticaria [Recovered/Resolved]
  - Blood pressure increased [Recovered/Resolved]
  - Musculoskeletal pain [Recovered/Resolved]
  - Abdominal discomfort [Not Recovered/Not Resolved]
  - Back pain [Not Recovered/Not Resolved]
  - Skin irritation [Not Recovered/Not Resolved]
  - Nausea [Unknown]
  - Rash [Not Recovered/Not Resolved]
  - Stomatitis [Recovered/Resolved]
  - Gastric dilatation [Unknown]
  - Heavy menstrual bleeding [Unknown]
  - Irritable bowel syndrome [Not Recovered/Not Resolved]
  - Neuropathy peripheral [Not Recovered/Not Resolved]
  - Hypoacusis [Not Recovered/Not Resolved]
  - Gastroenteritis viral [Unknown]
  - Epistaxis [Unknown]
  - Food allergy [Unknown]
  - Decreased appetite [Not Recovered/Not Resolved]
  - Diarrhoea [Not Recovered/Not Resolved]
  - Gastrooesophageal reflux disease [Not Recovered/Not Resolved]
  - Alopecia [Not Recovered/Not Resolved]
  - Fatigue [Not Recovered/Not Resolved]
  - Headache [Not Recovered/Not Resolved]
  - Vomiting [Unknown]
  - Amenorrhoea [Not Recovered/Not Resolved]
  - Oesophageal injury [Unknown]
  - Arthralgia [Not Recovered/Not Resolved]

NARRATIVE: CASE EVENT DATE: 20160101
